FAERS Safety Report 20587741 (Version 1)
Quarter: 2022Q1

REPORT INFORMATION
  Report Type: Spontaneous
  Country: ES (occurrence: ES)
  Receive Date: 20220314
  Receipt Date: 20220314
  Transmission Date: 20220423
  Serious: Yes (Other)
  Sender: FDA-Public Use
  Company Number: ES-KRKA-ES2021K03954LIT

PATIENT
  Age: 43 Year
  Sex: Female

DRUGS (5)
  1. ETORICOXIB [Suspect]
     Active Substance: ETORICOXIB
     Indication: Joint injury
     Dosage: 60 MILLIGRAM (2 MONTHS LATER)
     Route: 048
  2. ETORICOXIB [Suspect]
     Active Substance: ETORICOXIB
     Indication: Drug provocation test
  3. ETORICOXIB [Suspect]
     Active Substance: ETORICOXIB
     Indication: Joint swelling
  4. IBUPROFEN [Suspect]
     Active Substance: IBUPROFEN
     Indication: Joint injury
     Dosage: UNK
     Route: 065
  5. IBUPROFEN [Concomitant]
     Active Substance: IBUPROFEN
     Indication: Joint injury
     Dosage: 600 MILLIGRAM
     Route: 048

REACTIONS (10)
  - Fixed eruption [Recovered/Resolved]
  - Erythema [Recovered/Resolved]
  - Skin plaque [Recovered/Resolved]
  - Blister [Recovered/Resolved]
  - Dermatitis bullous [Recovering/Resolving]
  - Skin lesion [Recovering/Resolving]
  - Drug hypersensitivity [Recovering/Resolving]
  - Skin hyperpigmentation [Recovering/Resolving]
  - Generalised bullous fixed drug eruption [Recovered/Resolved]
  - Product use in unapproved indication [Unknown]
